FAERS Safety Report 23344210 (Version 3)
Quarter: 2024Q1

REPORT INFORMATION
  Report Type: Report from Study
  Country: US (occurrence: US)
  Receive Date: 20231228
  Receipt Date: 20240207
  Transmission Date: 20240410
  Serious: Yes (Other)
  Sender: FDA-Public Use
  Company Number: US-ABBVIE-5561664

PATIENT
  Sex: Female

DRUGS (1)
  1. HUMIRA [Suspect]
     Active Substance: ADALIMUMAB
     Indication: Psoriasis
     Dosage: FORM STRENGTH: 40MG, CITRATE FREE
     Route: 058
     Dates: start: 20131115

REACTIONS (3)
  - Medical device implantation [Unknown]
  - Medical device site abscess [Recovering/Resolving]
  - Medical device removal [Recovering/Resolving]

NARRATIVE: CASE EVENT DATE: 20190101
